FAERS Safety Report 9634356 (Version 2)
Quarter: 2013Q4

REPORT INFORMATION
  Report Type: Spontaneous
  Country: GB (occurrence: GB)
  Receive Date: 20131021
  Receipt Date: 20131111
  Transmission Date: 20140711
  Serious: Yes (Death, Other)
  Sender: FDA-Public Use
  Company Number: GB-JNJFOC-20131011523

PATIENT
  Sex: Female

DRUGS (2)
  1. XARELTO [Suspect]
     Indication: EMBOLISM VENOUS
     Route: 048
     Dates: start: 20131003, end: 20131006
  2. XARELTO [Suspect]
     Indication: PULMONARY EMBOLISM
     Route: 048
     Dates: start: 20131003, end: 20131006

REACTIONS (3)
  - Cardiopulmonary failure [Fatal]
  - Atrial fibrillation [Unknown]
  - Urinary tract infection [Unknown]
